FAERS Safety Report 17711820 (Version 1)
Quarter: 2020Q2

REPORT INFORMATION
  Report Type: Spontaneous
  Country: US (occurrence: US)
  Receive Date: 20200426
  Receipt Date: 20200426
  Transmission Date: 20200714
  Serious: Yes (Hospitalization)
  Sender: FDA-Public Use
  Company Number: None

PATIENT
  Age: 23 Year
  Sex: Male
  Weight: 85.5 kg

DRUGS (13)
  1. PERTZYE 24,000 CAPSULES [Concomitant]
  2. VITAMIN D [Concomitant]
     Active Substance: VITAMIN D NOS
  3. CETIRIZINE 10MG TABS [Concomitant]
  4. NOVOLOG [Concomitant]
     Active Substance: INSULIN ASPART
  5. TRIKAFTA [Suspect]
     Active Substance: ELEXACAFTOR\IVACAFTOR\TEZACAFTOR
     Indication: CYSTIC FIBROSIS
     Dosage: ?          OTHER FREQUENCY:2 TABS QAM +1 QPM;?
     Route: 048
     Dates: start: 20191210
  6. COMBIVENT RESPIMAT ORAL 120 SPRAY [Concomitant]
  7. PULMOZYME [Concomitant]
     Active Substance: DORNASE ALFA
  8. SODIUM CHLORIDE 3% NEB [Concomitant]
  9. AZITHROMYCIN 250MG TABS [Concomitant]
  10. ZANTAC [Concomitant]
     Active Substance: RANITIDINE HYDROCHLORIDE
  11. ALBUTEROL 0.083% [Concomitant]
     Active Substance: ALBUTEROL
  12. LANTUS SOLOSTAR [Concomitant]
     Active Substance: INSULIN GLARGINE
  13. OMEPRAZOLE 20MG [Concomitant]
     Active Substance: OMEPRAZOLE

REACTIONS (2)
  - Pneumonia [None]
  - Nasopharyngitis [None]

NARRATIVE: CASE EVENT DATE: 20200403
